FAERS Safety Report 6591223-4 (Version None)
Quarter: 2010Q1

REPORT INFORMATION
  Report Type: 
  Country: None (occurrence: None)
  Receive Date: 20100219
  Receipt Date: 20100211
  Transmission Date: 20100710
  Serious: Yes (Other)
  Sender: FDA-Public Use
  Company Number: US-GENENTECH-294026

PATIENT
  Sex: Female
  Weight: 120.5 kg

DRUGS (15)
  1. XOLAIR [Suspect]
     Indication: ASTHMA
     Dosage: 450 MG, Q2W
     Route: 058
     Dates: start: 20081112
  2. XOLAIR [Suspect]
     Indication: RHINITIS ALLERGIC
  3. GLUCOPHAGE [Concomitant]
     Indication: DRUG USE FOR UNKNOWN INDICATION
  4. ZETIA [Concomitant]
     Indication: DRUG USE FOR UNKNOWN INDICATION
  5. CLONIDINE [Concomitant]
     Indication: DRUG USE FOR UNKNOWN INDICATION
  6. PRAVASTATIN [Concomitant]
     Indication: DRUG USE FOR UNKNOWN INDICATION
  7. PANTOPRAZOLE [Concomitant]
     Indication: DRUG USE FOR UNKNOWN INDICATION
  8. AMLODIPINE [Concomitant]
     Indication: DRUG USE FOR UNKNOWN INDICATION
  9. CENTRUM SILVER [Concomitant]
     Indication: DRUG USE FOR UNKNOWN INDICATION
  10. FISH OIL [Concomitant]
     Indication: DRUG USE FOR UNKNOWN INDICATION
  11. ALBUTEROL [Concomitant]
     Indication: DRUG USE FOR UNKNOWN INDICATION
  12. SINGULAIR [Concomitant]
     Indication: DRUG USE FOR UNKNOWN INDICATION
  13. PRINIVIL [Concomitant]
     Indication: DRUG USE FOR UNKNOWN INDICATION
  14. ACTOS [Concomitant]
     Indication: DRUG USE FOR UNKNOWN INDICATION
  15. GLUCOSAMINE [Concomitant]
     Indication: DRUG USE FOR UNKNOWN INDICATION

REACTIONS (4)
  - MYALGIA [None]
  - SWELLING [None]
  - UPPER EXTREMITY MASS [None]
  - WEIGHT INCREASED [None]
